FAERS Safety Report 7170278-2 (Version None)
Quarter: 2010Q4

REPORT INFORMATION
  Report Type: 
  Country: None (occurrence: None)
  Receive Date: 20101217
  Receipt Date: 20101206
  Transmission Date: 20110411
  Serious: No
  Sender: FDA-Public Use
  Company Number: US-PFIZER INC-2010165353

PATIENT
  Sex: Female
  Weight: 71.7 kg

DRUGS (7)
  1. PREMARIN [Suspect]
     Indication: VULVOVAGINAL DRYNESS
     Dosage: UNK
     Route: 067
     Dates: start: 20101109, end: 20101130
  2. PREMARIN [Suspect]
     Indication: VULVOVAGINAL PRURITUS
  3. PREMARIN [Suspect]
     Indication: VULVOVAGINAL BURNING SENSATION
  4. TRIAMTERENE AND HYDROCHLOROTHIAZIDE [Concomitant]
     Indication: HYPERTENSION
     Dosage: 37.5/25
     Dates: start: 19950101
  5. SYNTHROID [Concomitant]
     Indication: THYROID DISORDER
     Dosage: 0.1 MG, 1X/DAY
     Route: 048
     Dates: start: 19900101
  6. VITAMINS [Concomitant]
     Dosage: UNK
  7. GLUCOSAMINE [Concomitant]
     Dosage: UNK
     Route: 061

REACTIONS (1)
  - APPLICATION SITE IRRITATION [None]
